FAERS Safety Report 18286083 (Version 2)
Quarter: 2021Q3

REPORT INFORMATION
  Report Type: Spontaneous
  Country: JP (occurrence: JP)
  Receive Date: 20200919
  Receipt Date: 20210719
  Transmission Date: 20211014
  Serious: Yes (Death, Other)
  Sender: FDA-Public Use
  Company Number: JP-AMGEN-JPNSP2020149913

PATIENT
  Age: 36 Year
  Sex: Female

DRUGS (1)
  1. BLINCYTO [Suspect]
     Active Substance: BLINATUMOMAB
     Indication: ACUTE LYMPHOCYTIC LEUKAEMIA RECURRENT
     Dosage: UNK
     Route: 065

REACTIONS (4)
  - Graft versus host disease [Fatal]
  - Neutropenia [Unknown]
  - Febrile neutropenia [Unknown]
  - Cytokine release syndrome [Unknown]
